FAERS Safety Report 7000868-9 (Version None)
Quarter: 2010Q3

REPORT INFORMATION
  Report Type: 
  Country: None (occurrence: None)
  Receive Date: 20100920
  Receipt Date: 20100907
  Transmission Date: 20110219
  Serious: Yes (Hospitalization, Other)
  Sender: FDA-Public Use
  Company Number: PHHY2010US58063

PATIENT
  Sex: Male

DRUGS (5)
  1. VALTURNA [Suspect]
  2. OMEPRAZOLE [Concomitant]
  3. OXYCODONE HCL [Concomitant]
  4. MIRALAX [Concomitant]
  5. AMLODIPINE [Concomitant]

REACTIONS (3)
  - BLOOD PRESSURE INCREASED [None]
  - DRUG INEFFECTIVE [None]
  - KIDNEY ENLARGEMENT [None]
